FAERS Safety Report 8922161 (Version 1)
Quarter: 2012Q4

REPORT INFORMATION
  Report Type: 
  Country: US (occurrence: US)
  Receive Date: 20121123
  Receipt Date: 20121123
  Transmission Date: 20130627
  Serious: No
  Sender: FDA-Public Use
  Company Number: US-009507513-1211USA009008

PATIENT
  Sex: Female

DRUGS (2)
  1. PEGINTRON [Suspect]
     Indication: HEPATITIS C
     Dosage: UNK
     Route: 058
     Dates: start: 20121113
  2. REBETOL [Suspect]
     Indication: HEPATITIS C
     Dosage: UNK
     Route: 048
     Dates: start: 20121113

REACTIONS (11)
  - Visual impairment [Unknown]
  - Injection site erythema [Unknown]
  - Influenza like illness [Unknown]
  - Vomiting [Unknown]
  - Diarrhoea [Unknown]
  - Dehydration [Unknown]
  - Dyspnoea [Unknown]
  - Anxiety [Unknown]
  - Pain [Unknown]
  - Headache [Unknown]
  - Hypoaesthesia oral [Unknown]
